FAERS Safety Report 7867511-8 (Version None)
Quarter: 2011Q4

REPORT INFORMATION
  Report Type: 
  Country: None (occurrence: None)
  Receive Date: 20111028
  Receipt Date: 20111020
  Transmission Date: 20120403
  Serious: No
  Sender: FDA-Public Use
  Company Number: US-B.I. PHARMACEUTICALS,INC./RIDGEFIELD-2011-BP-22598BP

PATIENT
  Sex: Male

DRUGS (12)
  1. FUROSEMIDE [Concomitant]
  2. TRAVATAN Z [Concomitant]
  3. LISINOPRIL [Concomitant]
  4. LYRICA [Concomitant]
  5. CYMBALTA [Concomitant]
  6. ZOCOR [Concomitant]
  7. TOPROL-XL [Concomitant]
  8. PANTOPRAZOLE SOD DR [Concomitant]
  9. PRADAXA [Suspect]
     Indication: ATRIAL FIBRILLATION
     Dosage: 300 MG
  10. COUMADIN [Concomitant]
  11. PLAVIX [Concomitant]
  12. KETOCONAZOLE CR [Concomitant]

REACTIONS (4)
  - DYSPEPSIA [None]
  - CHEST DISCOMFORT [None]
  - OROPHARYNGEAL PAIN [None]
  - CHEST PAIN [None]
